FAERS Safety Report 25284989 (Version 1)
Quarter: 2025Q2

REPORT INFORMATION
  Report Type: Report from Study
  Country: US (occurrence: US)
  Receive Date: 20250508
  Receipt Date: 20250508
  Transmission Date: 20250716
  Serious: Yes (Other)
  Sender: ABBVIE
  Company Number: US-ABBVIE-6266944

PATIENT
  Age: 72 Year
  Sex: Male

DRUGS (2)
  1. SKYRIZI [Suspect]
     Active Substance: RISANKIZUMAB-RZAA
     Indication: Crohn^s disease
     Route: 058
     Dates: start: 20250206
  2. SKYRIZI [Suspect]
     Active Substance: RISANKIZUMAB-RZAA
     Indication: Crohn^s disease
     Route: 042

REACTIONS (6)
  - Small intestine operation [Unknown]
  - Device issue [Not Recovered/Not Resolved]
  - Injection site haemorrhage [Unknown]
  - Injection site papule [Unknown]
  - Breast pain [Unknown]
  - Arthralgia [Unknown]
